FAERS Safety Report 13900171 (Version 1)
Quarter: 2017Q3

REPORT INFORMATION
  Report Type: Spontaneous
  Country: US (occurrence: US)
  Receive Date: 20170823
  Receipt Date: 20170823
  Transmission Date: 20171127
  Serious: No
  Sender: FDA-Public Use
  Company Number: US-AMNEAL PHARMACEUTICALS-2017AMN00656

PATIENT
  Sex: Female

DRUGS (4)
  1. ENALAPRIL [Suspect]
     Active Substance: ENALAPRIL
     Indication: PERIPARTUM CARDIOMYOPATHY
     Dosage: 5 MG, 2X/DAY
     Route: 048
     Dates: start: 201610
  2. CARVEDILOL. [Suspect]
     Active Substance: CARVEDILOL
     Dosage: 12.5 MG, 1X/DAY AT NIGHT
     Route: 048
     Dates: start: 20160828
  3. SPIRONOLACTONE. [Suspect]
     Active Substance: SPIRONOLACTONE
     Indication: PERIPARTUM CARDIOMYOPATHY
     Dosage: 0.5 TABLETS, 1X/DAY
     Route: 048
     Dates: start: 20160828
  4. CARVEDILOL. [Suspect]
     Active Substance: CARVEDILOL
     Indication: PERIPARTUM CARDIOMYOPATHY
     Dosage: 18.75 MG, 1X/DAY IN AM
     Route: 048
     Dates: start: 20160828

REACTIONS (1)
  - Drug ineffective [Not Recovered/Not Resolved]
